FAERS Safety Report 6219506-8 (Version None)
Quarter: 2009Q2

REPORT INFORMATION
  Report Type: 
  Country: None (occurrence: None)
  Receive Date: 20090609
  Receipt Date: 20090528
  Transmission Date: 20091009
  Serious: Yes (Other)
  Sender: FDA-Public Use
  Company Number: US-JNJFOC-20090600436

PATIENT
  Sex: Female
  Weight: 70.31 kg

DRUGS (9)
  1. FENTANYL TRANSDERMAL SYSTEM [Suspect]
     Route: 062
  2. FENTANYL TRANSDERMAL SYSTEM [Suspect]
     Route: 062
  3. FENTANYL TRANSDERMAL SYSTEM [Suspect]
     Route: 062
  4. FENTANYL TRANSDERMAL SYSTEM [Suspect]
     Route: 062
  5. FENTANYL TRANSDERMAL SYSTEM [Suspect]
     Indication: BACK PAIN
     Route: 062
  6. TRAZODONE HCL [Concomitant]
     Indication: SLEEP DISORDER
     Dosage: 1 AT BED TIME
     Route: 048
  7. CITALOPRAM HYDROBROMIDE [Concomitant]
     Indication: ANXIETY
     Route: 048
  8. OMEPRAZOLE [Concomitant]
     Indication: GASTROOESOPHAGEAL REFLUX DISEASE
     Route: 048
  9. OTHER DRUGS (UNSPECIFIED) [Concomitant]
     Indication: DIARRHOEA
     Dosage: AS NEEDED
     Route: 048

REACTIONS (9)
  - APPLICATION SITE RASH [None]
  - ARTHRITIS [None]
  - BLOOD CHOLESTEROL INCREASED [None]
  - CONSTIPATION [None]
  - DIZZINESS [None]
  - DYSURIA [None]
  - FLUID RETENTION [None]
  - IRRITABILITY [None]
  - PAIN [None]
